FAERS Safety Report 7320605-8 (Version None)
Quarter: 2011Q1

REPORT INFORMATION
  Report Type: 
  Country: None (occurrence: None)
  Receive Date: 20110228
  Receipt Date: 20110228
  Transmission Date: 20110831
  Serious: Yes (Other)
  Sender: FDA-Public Use
  Company Number: HU-ELI_LILLY_AND_COMPANY-HU201007002730

PATIENT
  Sex: Male
  Weight: 56 kg

DRUGS (11)
  1. CISPLATIN [Suspect]
     Indication: NON-SMALL CELL LUNG CANCER
     Dosage: 120 MG 1 IN 3 WEEKS
     Route: 042
     Dates: start: 20100427, end: 20100630
  2. PANTOPRAZOL [Concomitant]
     Indication: GASTROOESOPHAGEAL REFLUX DISEASE
     Dates: start: 20100128
  3. FUROSEMIDE [Concomitant]
     Indication: HYPERTENSION
     Dates: start: 20100128
  4. ALFETIM [Concomitant]
     Indication: BENIGN PROSTATIC HYPERPLASIA
     Dates: start: 20100201
  5. FORMOTEROL FUMARATE [Concomitant]
     Indication: DYSPNOEA
     Dates: start: 20100426
  6. GEMCITABINE HYDROCHLORIDE [Suspect]
     Indication: NON-SMALL CELL LUNG CANCER
     Dosage: 1971 MG 2 IN 3 WEEKS
     Route: 042
     Dates: start: 20100427, end: 20100630
  7. PANCREATIN [Concomitant]
     Dates: start: 20100128
  8. POTASSIUM [Concomitant]
     Indication: HYPERTENSION
     Dates: start: 20100128
  9. CERUCAL [Concomitant]
     Indication: VOMITING
     Dates: start: 20100128
  10. SPIRONOLACTONE [Concomitant]
     Indication: HYPERTENSION
     Dates: start: 20100128
  11. FRONTIN [Concomitant]
     Indication: ANXIETY
     Dates: start: 20100128

REACTIONS (9)
  - BLOOD ALKALINE PHOSPHATASE INCREASED [None]
  - LYMPHOCYTE COUNT DECREASED [None]
  - NON-SMALL CELL LUNG CANCER [None]
  - NEUTROPHIL COUNT DECREASED [None]
  - NEOPLASM MALIGNANT [None]
  - HYPOMAGNESAEMIA [None]
  - WHITE BLOOD CELL COUNT DECREASED [None]
  - BLOOD CREATININE INCREASED [None]
  - HAEMOGLOBIN DECREASED [None]
